FAERS Safety Report 25345791 (Version 7)
Quarter: 2025Q4

REPORT INFORMATION
  Report Type: Report from Study
  Country: JP (occurrence: JP)
  Receive Date: 20250522
  Receipt Date: 20251208
  Transmission Date: 20260118
  Serious: Yes (Hospitalization, Other)
  Sender: SANOFI AVENTIS
  Company Number: JP-SA-2025SA142474

PATIENT
  Age: 45 Year
  Sex: Female
  Weight: 38.9 kg

DRUGS (16)
  1. ISATUXIMAB [Suspect]
     Active Substance: ISATUXIMAB
     Indication: Plasma cell myeloma refractory
     Dosage: 10 MG/KG, QW
     Route: 041
     Dates: start: 20231025, end: 20231108
  2. KYPROLIS [Suspect]
     Active Substance: CARFILZOMIB
     Indication: Plasma cell myeloma refractory
     Dosage: 20 MG/M2/DAY
     Route: 065
     Dates: start: 20231025, end: 20231026
  3. KYPROLIS [Suspect]
     Active Substance: CARFILZOMIB
     Dosage: 56 MG/M2/DAY
     Route: 065
     Dates: start: 20231101, end: 20231102
  4. KYPROLIS [Suspect]
     Active Substance: CARFILZOMIB
     Dosage: 56 MG/M2/DAY
     Route: 065
     Dates: start: 20231108, end: 20231108
  5. DEXAMETHASONE [Concomitant]
     Active Substance: DEXAMETHASONE
     Indication: Plasma cell myeloma refractory
     Dosage: 20 MG/DAY
     Route: 065
     Dates: start: 20231025, end: 20231026
  6. DEXAMETHASONE [Concomitant]
     Active Substance: DEXAMETHASONE
     Dosage: 20 MG/DAY
     Route: 065
     Dates: start: 20231101, end: 20231102
  7. DEXAMETHASONE [Concomitant]
     Active Substance: DEXAMETHASONE
     Dosage: 20 MG/DAY
     Route: 065
     Dates: start: 20231108, end: 20231109
  8. FEBUXOSTAT [Concomitant]
     Active Substance: FEBUXOSTAT
     Indication: Plasma cell myeloma refractory
     Dosage: 60 MG/DAY
     Route: 065
     Dates: start: 20231011
  9. MIROGABALIN BESYLATE [Concomitant]
     Active Substance: MIROGABALIN BESYLATE
     Indication: Plasma cell myeloma refractory
     Dosage: 5 MG/DAY
     Route: 048
     Dates: start: 20231020
  10. SULFAMETHOXAZOLE\TRIMETHOPRIM [Concomitant]
     Active Substance: SULFAMETHOXAZOLE\TRIMETHOPRIM
     Indication: Infection prophylaxis
     Dosage: 1 TABLET/DAY
     Route: 048
     Dates: start: 20231020
  11. CALCIUM CARBONATE\CHOLECALCIFEROL\MAGNESIUM CARBONATE [Concomitant]
     Active Substance: CALCIUM CARBONATE\CHOLECALCIFEROL\MAGNESIUM CARBONATE
     Indication: Plasma cell myeloma refractory
     Dosage: 2 TABLETS/DAY
     Route: 048
     Dates: start: 20231020
  12. ACYCLOVIR [Concomitant]
     Active Substance: ACYCLOVIR
     Indication: Infection prophylaxis
     Dosage: 200 MG/DAY
     Route: 065
     Dates: start: 20231020
  13. ASPIRIN [Concomitant]
     Active Substance: ASPIRIN
     Indication: Plasma cell myeloma refractory
     Dosage: 100 MG/DAY
     Route: 065
     Dates: start: 20231020, end: 20231026
  14. HYDROMORPHONE HYDROCHLORIDE [Concomitant]
     Active Substance: HYDROMORPHONE HYDROCHLORIDE
     Indication: Plasma cell myeloma refractory
     Dosage: 6 MG/DAY
     Route: 065
     Dates: start: 20231020
  15. CALONAL [Concomitant]
     Active Substance: ACETAMINOPHEN
     Indication: Prophylaxis
     Dosage: 400 MG/DAY
     Route: 065
     Dates: start: 20231025
  16. DIPHENHYDRAMINE HYDROCHLORIDE [Concomitant]
     Active Substance: DIPHENHYDRAMINE HYDROCHLORIDE
     Indication: Prophylaxis
     Dosage: 50 MG/DAY
     Route: 065
     Dates: start: 20231025

REACTIONS (2)
  - Tumour lysis syndrome [Recovered/Resolved]
  - Platelet count decreased [Recovered/Resolved]

NARRATIVE: CASE EVENT DATE: 20231027
